FAERS Safety Report 11881619 (Version 3)
Quarter: 2017Q3

REPORT INFORMATION
  Report Type: Report from Study
  Country: JP (occurrence: JP)
  Receive Date: 20151231
  Receipt Date: 20170808
  Transmission Date: 20171127
  Serious: Yes (Hospitalization)
  Sender: FDA-Public Use
  Company Number: JP-HORIZON-BUP-0053-2015

PATIENT
  Age: 37 Year
  Sex: Female
  Weight: 60.7 kg

DRUGS (19)
  1. ARGI-U [Concomitant]
     Indication: ORNITHINE TRANSCARBAMOYLASE DEFICIENCY
     Dosage: 3 G DAILY, 1.5 G PER DOSE, ORALLY
     Route: 048
  2. FERROMIA [Concomitant]
     Active Substance: FERROUS CITRATE
     Dosage: 1.2 G DAILY ORALLY
     Route: 048
     Dates: start: 20151209, end: 20151217
  3. CLEXANE [Concomitant]
     Active Substance: ENOXAPARIN SODIUM
     Dosage: 2000 IU DAILY
     Route: 058
     Dates: start: 20151224, end: 20151227
  4. BUPHENYL [Suspect]
     Active Substance: SODIUM PHENYLBUTYRATE
     Indication: ORNITHINE TRANSCARBAMOYLASE DEFICIENCY
     Dosage: FROM 22-NOV-2015 TO 29-NOV-2015 3 G TID, INREASED TO 4.5 G FOUR TIMES DAILY ON 30-NOV-2015
     Route: 048
     Dates: start: 20151122
  5. OMEPRAZOLE. [Concomitant]
     Active Substance: OMEPRAZOLE
     Dosage: 20 MG DAILY
     Route: 042
     Dates: end: 20151223
  6. LACTULOSE. [Concomitant]
     Active Substance: LACTULOSE
     Indication: ORNITHINE TRANSCARBAMOYLASE DEFICIENCY
     Dosage: 60 ML DAILY, 30 ML PER DOSE, ORALLY
     Route: 048
     Dates: start: 20151123, end: 20160110
  7. MEROPENEM. [Concomitant]
     Active Substance: MEROPENEM
     Dosage: 1 G DAILY
  8. VANCOMYCIN [Concomitant]
     Active Substance: VANCOMYCIN
     Dosage: 1 G DAILY
     Dates: end: 20151223
  9. CITRULLINE [Concomitant]
     Active Substance: CITRULLINE
     Indication: ORNITHINE TRANSCARBAMOYLASE DEFICIENCY
     Dosage: 3 G DAILY, 1.5 G PER DOSE
  10. PRECEDEX [Concomitant]
     Active Substance: DEXMEDETOMIDINE HYDROCHLORIDE
     Indication: SEDATION
     Dosage: 600 ?G DAILY
     Dates: end: 20160112
  11. MIDAZOLAM [Concomitant]
     Active Substance: MIDAZOLAM HYDROCHLORIDE
     Indication: SEDATION
     Dosage: 50 MG DAILY, IV
     Route: 042
     Dates: end: 20160111
  12. MAXIPIME [Concomitant]
     Active Substance: CEFEPIME HYDROCHLORIDE
     Dosage: 6 G DAILY
     Dates: end: 20151223
  13. FUNGUARD [Concomitant]
     Active Substance: MICAFUNGIN SODIUM
     Dosage: 150 MG DAILY
  14. SODIUM BENZOATE [Concomitant]
     Active Substance: SODIUM BENZOATE
     Indication: ORNITHINE TRANSCARBAMOYLASE DEFICIENCY
     Dosage: 15 G DAILY
     Route: 042
     Dates: start: 20151123, end: 20151213
  15. FENTANYL. [Concomitant]
     Active Substance: FENTANYL
     Indication: SEDATION
     Dosage: 1.2 G DAILY, IV
     Route: 042
     Dates: end: 20151228
  16. SULBACILLIN [Concomitant]
     Active Substance: AMPICILLIN SODIUM\SULBACTAM SODIUM
     Dosage: 2 G DAILY, IV
     Route: 042
     Dates: start: 20151228, end: 20160115
  17. KENKETSU VENOGLOBULIN-IH [Concomitant]
     Dosage: 5 G DAILY, IV
     Route: 042
     Dates: end: 20151223
  18. SODIUM BENZOATE [Concomitant]
     Active Substance: SODIUM BENZOATE
     Indication: ORNITHINE TRANSCARBAMOYLASE DEFICIENCY
     Dosage: 15 G DAILY, 5 G PER DOSE, ORALLY
     Route: 048
     Dates: start: 20151213
  19. L-CARTIN FF [Concomitant]
     Active Substance: LEVOCARNITINE
     Indication: ORNITHINE TRANSCARBAMOYLASE DEFICIENCY
     Dosage: 3 DF DAILY, 1 DF PER DOSE, ORALLY
     Route: 048

REACTIONS (2)
  - Pyrexia [Recovering/Resolving]
  - Rash [Recovering/Resolving]

NARRATIVE: CASE EVENT DATE: 20151210
